FAERS Safety Report 18913207 (Version 1)
Quarter: 2021Q1

REPORT INFORMATION
  Report Type: Spontaneous
  Country: US (occurrence: US)
  Receive Date: 20210218
  Receipt Date: 20210218
  Transmission Date: 20210420
  Serious: No
  Sender: FDA-Public Use
  Company Number: US-ELI_LILLY_AND_COMPANY-US202102006047

PATIENT
  Age: 66 Year
  Sex: Female

DRUGS (4)
  1. JAKAFI [Concomitant]
     Active Substance: RUXOLITINIB
     Dosage: 10 MG, BID
     Route: 048
  2. BAMLANIVIMAB. [Suspect]
     Active Substance: BAMLANIVIMAB
     Indication: COVID-19
     Dosage: UNK, SINGLE
     Route: 065
     Dates: start: 20201202
  3. JAKAFI [Concomitant]
     Active Substance: RUXOLITINIB
     Indication: MYELOFIBROSIS
     Dosage: 20 MG, BID
     Route: 048
     Dates: start: 20180127
  4. JAKAFI [Concomitant]
     Active Substance: RUXOLITINIB
     Indication: POLYCYTHAEMIA VERA
     Dosage: 10 MG, BID
     Route: 048

REACTIONS (2)
  - Ageusia [Recovering/Resolving]
  - Anosmia [Recovering/Resolving]

NARRATIVE: CASE EVENT DATE: 20201203
